FAERS Safety Report 11903371 (Version 1)
Quarter: 2016Q1

REPORT INFORMATION
  Report Type: Spontaneous
  Country: US (occurrence: US)
  Receive Date: 20160108
  Receipt Date: 20160108
  Transmission Date: 20160526
  Serious: No
  Sender: FDA-Public Use
  Company Number: US-ASTRAZENECA-2015SF31396

PATIENT
  Age: 64 Year
  Sex: Female
  Weight: 65.8 kg

DRUGS (3)
  1. TOPROL XL [Suspect]
     Active Substance: METOPROLOL SUCCINATE
     Indication: ARRHYTHMIA
     Route: 048
     Dates: start: 2014
  2. TOPROL XL [Suspect]
     Active Substance: METOPROLOL SUCCINATE
     Indication: ARRHYTHMIA
     Route: 048
  3. ADENOSINE. [Concomitant]
     Active Substance: ADENOSINE

REACTIONS (3)
  - Weight increased [Unknown]
  - Drug ineffective [Unknown]
  - Cardiac flutter [Unknown]

NARRATIVE: CASE EVENT DATE: 2014
